FAERS Safety Report 5010055-1 (Version None)
Quarter: 2006Q2

REPORT INFORMATION
  Report Type: 
  Country: None (occurrence: None)
  Receive Date: 20060523
  Receipt Date: 20060511
  Transmission Date: 20061013
  Serious: Yes (Hospitalization)
  Sender: FDA-Public Use
  Company Number: 2006062773

PATIENT
  Age: 67 Year
  Sex: Male
  Weight: 88 kg

DRUGS (7)
  1. ZITHROMAX [Suspect]
     Indication: ILL-DEFINED DISORDER
     Dosage: ORAL
     Route: 048
     Dates: start: 20060227, end: 20060304
  2. KARDEGIC (ACETYLSALICYLATE LYSINE) [Concomitant]
  3. DIGOXIN [Concomitant]
  4. INIPOMP (PANTOPRAZOLE) [Concomitant]
  5. FUROSEMIDE [Concomitant]
  6. ALDACTONE [Concomitant]
  7. ALLOPURINOL [Concomitant]

REACTIONS (1)
  - VASCULAR PURPURA [None]
